FAERS Safety Report 7283928-7 (Version None)
Quarter: 2011Q1

REPORT INFORMATION
  Report Type: 
  Country: None (occurrence: None)
  Receive Date: 20110131
  Receipt Date: 20101231
  Transmission Date: 20110831
  Serious: Yes (Death)
  Sender: FDA-Public Use
  Company Number: AUR-APL-2011-00099

PATIENT
  Age: 45 Year
  Sex: Male

DRUGS (3)
  1. METFORMIN [Suspect]
  2. ZIPRASIDONE [Suspect]
  3. ISONIAZID [Suspect]

REACTIONS (3)
  - INTENTIONAL DRUG MISUSE [None]
  - COMPLETED SUICIDE [None]
  - SELF INJURIOUS BEHAVIOUR [None]
